FAERS Safety Report 18103151 (Version 1)
Quarter: 2020Q3

REPORT INFORMATION
  Report Type: Spontaneous
  Country: US (occurrence: US)
  Receive Date: 20200801
  Receipt Date: 20200801
  Transmission Date: 20201103
  Serious: No
  Sender: FDA-Public Use
  Company Number: None

PATIENT
  Age: 56 Year
  Sex: Male
  Weight: 107 kg

DRUGS (22)
  1. AZITHROMYCIN ANHYDROUS. [Concomitant]
     Active Substance: AZITHROMYCIN ANHYDROUS
     Dates: start: 20200510, end: 20200514
  2. CEFTRIAXONE 1GRAM IN 100ML NS [Concomitant]
     Dates: start: 20200510, end: 20200510
  3. HYDROMORPHONE INJ [Concomitant]
     Dates: start: 20200510, end: 20200519
  4. DESMOPRESSIN 1MCG INJ [Concomitant]
     Dates: start: 20200511, end: 20200511
  5. ENOXAPARIN 40MG SYR [Concomitant]
     Dates: start: 20200511, end: 20200511
  6. FUROSEMIDE 40MG INJ [Concomitant]
     Dates: start: 20200510, end: 20200512
  7. REMDESIVIR. [Suspect]
     Active Substance: REMDESIVIR
     Indication: COVID-19
     Route: 041
     Dates: start: 20200511, end: 20200512
  8. BUMETANIDE 10MG IN 100ML D5! [Concomitant]
     Dates: start: 20200512, end: 20200514
  9. DOPAMINE 400MG/250ML [Concomitant]
     Dates: start: 20200511, end: 20200511
  10. ENOXAPARIN 50MG SYR [Concomitant]
     Dates: start: 20200511, end: 20200511
  11. LEVOPHED 8MG/100ML [Concomitant]
     Dates: start: 20200511, end: 20200518
  12. CLONAZEPAM 2MG TAB [Concomitant]
     Dates: start: 20200511, end: 20200511
  13. VELETRI 1.5MG IN 60ML NS INH SOLN [Concomitant]
     Dates: start: 20200511, end: 20200517
  14. MIDODRINE 20MG TAB [Concomitant]
     Dates: start: 20200512, end: 20200513
  15. PHENYLEPHRINE 100MG/250ML IN NS [Concomitant]
     Dates: start: 20200510, end: 20200511
  16. FAMOTIDINE 20MG INJ [Concomitant]
     Dates: start: 20200510, end: 20200513
  17. HEPARIN [Concomitant]
     Active Substance: HEPARIN SODIUM
     Dates: start: 20200511, end: 20200518
  18. METOLAZONE 10MG TAB [Concomitant]
     Dates: start: 20200513, end: 20200513
  19. ACETAMINOPHEN 160MG/5ML SOLN [Concomitant]
     Dates: start: 20200510, end: 20200519
  20. ATROPINE 0.5MG INJ [Concomitant]
     Dates: start: 20200511, end: 20200511
  21. KETAMINE 1000MG/100ML NS [Concomitant]
     Dates: start: 20200511, end: 20200518
  22. SOLU?MEDROL [Concomitant]
     Active Substance: METHYLPREDNISOLONE SODIUM SUCCINATE
     Dates: start: 20200513, end: 20200517

REACTIONS (5)
  - Acute kidney injury [None]
  - Alanine aminotransferase increased [None]
  - Liver function test increased [None]
  - Blood creatinine increased [None]
  - Aspartate aminotransferase increased [None]

NARRATIVE: CASE EVENT DATE: 20200511
